FAERS Safety Report 9428242 (Version 1)
Quarter: 2013Q3

REPORT INFORMATION
  Report Type: Spontaneous
  Country: US (occurrence: US)
  Receive Date: 20130730
  Receipt Date: 20130730
  Transmission Date: 20140515
  Serious: No
  Sender: FDA-Public Use
  Company Number: US-GLAXOSMITHKLINE-A0999494A

PATIENT
  Age: 3 Month
  Sex: Male

DRUGS (1)
  1. ZANTAC [Suspect]
     Indication: ILL-DEFINED DISORDER
     Route: 065

REACTIONS (7)
  - Retching [Unknown]
  - Vomiting [Unknown]
  - Dyspnoea [Unknown]
  - Screaming [Unknown]
  - Food aversion [Unknown]
  - Insomnia [Unknown]
  - Drug ineffective [Unknown]
